FAERS Safety Report 9555038 (Version 1)
Quarter: 2013Q3

REPORT INFORMATION
  Report Type: Spontaneous
  Country: GB (occurrence: None)
  Receive Date: 20130906
  Receipt Date: 20130906
  Transmission Date: 20140515
  Serious: Yes (Other)
  Sender: FDA-Public Use
  Company Number: E2B_00000997

PATIENT
  Age: 62 Year
  Sex: Female
  Weight: 50 kg

DRUGS (9)
  1. SIMVASTATIN [Suspect]
     Indication: PRODUCT USED FOR UNKNOWN INDICATION
     Dosage: AT NIGHT
  2. AMLODIPINE [Suspect]
     Indication: PRODUCT USED FOR UNKNOWN INDICATION
  3. CLONAZEPAM [Concomitant]
  4. COD LIVER OIL (UNKNOWN) (COD LIVER OIL) [Concomitant]
  5. EVENING PRIMROSE (UNKNOWN) (EVENING PRIMROSE) [Concomitant]
  6. CALCIUM (UNKNOWN) (CALCIUM) [Concomitant]
  7. ERGOCALCIFEROL (UNKNOWN) (ERGOCALCIFEROL) [Concomitant]
  8. REMEDEINE (UNKNOWN) (REMEDEINE) [Concomitant]
  9. EZETIMIBE (UNKNOWN) (EZETIMIBE) [Concomitant]

REACTIONS (3)
  - Drug interaction [None]
  - Peroneal nerve palsy [None]
  - Fall [None]
